FAERS Safety Report 22651604 (Version 1)
Quarter: 2023Q2

REPORT INFORMATION
  Report Type: Spontaneous
  Country: GB (occurrence: GB)
  Receive Date: 20230628
  Receipt Date: 20230628
  Transmission Date: 20230722
  Serious: Yes (Other)
  Sender: FDA-Public Use
  Company Number: None

PATIENT
  Age: 65 Year
  Sex: Female
  Weight: 91 kg

DRUGS (20)
  1. MONTELUKAST [Suspect]
     Active Substance: MONTELUKAST SODIUM
     Indication: Asthma
     Dosage: UNK
     Route: 065
  2. MONTELUKAST [Suspect]
     Active Substance: MONTELUKAST SODIUM
     Dosage: 5 MILLIGRAM, QD (NIGHT)
     Route: 065
     Dates: start: 20230320
  3. ALOGLIPTIN [Concomitant]
     Active Substance: ALOGLIPTIN
     Dosage: 1 DOSAGE FORM, QD
     Route: 065
     Dates: start: 20230320
  4. ATORVASTATIN [Concomitant]
     Active Substance: ATORVASTATIN
     Indication: Blood cholesterol
     Dosage: 1 DOSAGE FORM, QD (NIGHT)
     Route: 065
     Dates: start: 20230320
  5. BISOPROLOL [Concomitant]
     Active Substance: BISOPROLOL
     Dosage: 1 DOSAGE FORM, QD
     Route: 065
     Dates: start: 20230320
  6. BRICANYL [Concomitant]
     Active Substance: TERBUTALINE SULFATE
     Indication: Dyspnoea
     Dosage: 1 DOSAGE FORM (AS NECESSARY)
     Route: 055
     Dates: start: 20230220
  7. CANDESARTAN [Concomitant]
     Active Substance: CANDESARTAN
     Indication: Blood pressure measurement
     Dosage: 1 DOSAGE FORM, QD
     Route: 065
     Dates: start: 20230320
  8. CHLORAMPHENICOL [Concomitant]
     Active Substance: CHLORAMPHENICOL
     Dosage: CAN BE USED EVERY 3-4 HOURS ON FIRST DAY, THEN
     Route: 065
     Dates: start: 20230607, end: 20230612
  9. CLOBETASOL PROPIONATE [Concomitant]
     Active Substance: CLOBETASOL PROPIONATE
     Dosage: APPLY SPARINGLY TO THE AFFECTED AREA(S) ONCE A
     Route: 065
     Dates: start: 20230320
  10. DOXYCYCLINE [Concomitant]
     Active Substance: DOXYCYCLINE
     Dosage: 1 DOSAGE FORM, QD (TAKE 2 ON THE FIRST DAY)
     Route: 065
     Dates: start: 20230502, end: 20230516
  11. FUROSEMIDE [Concomitant]
     Active Substance: FUROSEMIDE
     Dosage: 1 DOSAGE FORM, QD (MORNING)
     Route: 065
     Dates: start: 20230320
  12. GLICLAZIDE [Concomitant]
     Active Substance: GLICLAZIDE
     Dosage: 2 DOSAGE FORM, BID (WITH MEALS)
     Route: 065
     Dates: start: 20230320
  13. OMEPRAZOLE [Concomitant]
     Active Substance: OMEPRAZOLE
     Dosage: 1 DOSAGE FORM, QD
     Route: 065
     Dates: start: 20230320
  14. PREDNISOLONE [Concomitant]
     Active Substance: PREDNISOLONE
     Dosage: 6 DOSAGE FORM, QD (MORNING)
     Route: 065
     Dates: start: 20230502, end: 20230509
  15. SPIRONOLACTONE [Concomitant]
     Active Substance: SPIRONOLACTONE
     Dosage: 1 DOSAGE FORM, QD (MORNING)
     Route: 065
     Dates: start: 20230320
  16. TEGRETOL [Concomitant]
     Active Substance: CARBAMAZEPINE
     Dosage: 0.5 DOSAGE FORM, BID
     Route: 065
     Dates: start: 20230320
  17. TRELEGY ELLIPTA [Concomitant]
     Active Substance: FLUTICASONE FUROATE\UMECLIDINIUM BROMIDE\VILANTEROL TRIFENATATE
     Dosage: 1 DOSAGE FORM, QD
     Route: 055
     Dates: start: 20230320
  18. WARFARIN SODIUM [Concomitant]
     Active Substance: WARFARIN SODIUM
     Dosage: TAKE AS INSTRUCTED, ACCORDING TO THE INR RESULT
     Route: 065
     Dates: start: 20230320
  19. YALTORMIN SR [Concomitant]
     Dosage: 2 DOSAGE FORM, BID
     Route: 065
     Dates: start: 20230320
  20. ZEROCREAM [Concomitant]
     Dosage: APPLY TO THE AFFECTED AREA(S) LIBERALLY AND FRE
     Route: 065
     Dates: start: 20221128

REACTIONS (1)
  - Hyponatraemia [Not Recovered/Not Resolved]
